FAERS Safety Report 8369654-1 (Version None)
Quarter: 2012Q1

REPORT INFORMATION
  Report Type: 
  Country: None (occurrence: None)
  Receive Date: 20120323
  Receipt Date: 20111214
  Transmission Date: 20120608
  Serious: Yes (Other)
  Sender: FDA-Public Use
  Company Number: 163-21880-11112792

PATIENT
  Age: 70 Year
  Sex: Male

DRUGS (1)
  1. REVLIMID [Suspect]
     Indication: MULTIPLE MYELOMA
     Dosage: 25 MG, BEDTIME FOR 21 DAYS PER MONTH, PO
     Route: 048
     Dates: start: 20111011, end: 20110101

REACTIONS (2)
  - RASH GENERALISED [None]
  - MULTIPLE MYELOMA [None]
